FAERS Safety Report 10213062 (Version 1)
Quarter: 2014Q2

REPORT INFORMATION
  Report Type: Spontaneous
  Country: DE (occurrence: DE)
  Receive Date: 20140603
  Receipt Date: 20140603
  Transmission Date: 20141212
  Serious: Yes (Hospitalization)
  Sender: FDA-Public Use
  Company Number: DE-AMGEN-DEUSP2014039607

PATIENT
  Age: 71 Year
  Sex: Male
  Weight: 84 kg

DRUGS (7)
  1. XGEVA [Suspect]
     Indication: PROSTATE CANCER METASTATIC
     Dosage: 120 MG, Q4WK
     Route: 058
  2. ABIRATERONE ACETATE [Concomitant]
     Indication: PROSTATE CANCER
     Dosage: 100 MG, 1
     Route: 048
  3. PREDNISOLON                        /00016201/ [Concomitant]
     Indication: PROSTATE CANCER
     Dosage: 5 MG, 2
     Route: 048
  4. ASS [Concomitant]
     Indication: PERIPHERAL ARTERIAL OCCLUSIVE DISEASE
     Dosage: 100 MG, 1
     Route: 048
  5. CARMEN                             /00740901/ [Concomitant]
     Indication: HYPERTENSION
     Dosage: 10 MG, 1
     Route: 048
  6. SIMVASTATIN [Concomitant]
     Indication: HYPERCHOLESTEROLAEMIA
     Dosage: 10 MG, 1
     Route: 048
  7. EPROSARTAN [Concomitant]
     Indication: HYPERTENSION
     Dosage: UNK

REACTIONS (1)
  - Osteonecrosis of jaw [Recovered/Resolved]
